FAERS Safety Report 5218397-1 (Version None)
Quarter: 2007Q1

REPORT INFORMATION
  Report Type: 
  Country: None (occurrence: None)
  Receive Date: 20061130
  Receipt Date: 20060901
  Transmission Date: 20070707
  Serious: Yes (Hospitalization)
  Sender: FDA-Public Use
  Company Number: US200605006222

PATIENT
  Age: 24 Year
  Sex: Male
  Weight: 61.2 kg

DRUGS (2)
  1. ZYPREXA [Suspect]
     Dosage: 10 MG
     Dates: start: 19960901, end: 20051201
  2. BUPROPION HCL [Concomitant]

REACTIONS (4)
  - GLYCOSURIA [None]
  - PANCREATITIS [None]
  - POLYURIA [None]
  - WEIGHT DECREASED [None]
